FAERS Safety Report 8842895 (Version 2)
Quarter: 2018Q1

REPORT INFORMATION
  Report Type: Spontaneous
  Country: US (occurrence: US)
  Receive Date: 20121016
  Receipt Date: 20180220
  Transmission Date: 20180509
  Serious: No
  Sender: FDA-Public Use
  Company Number: US-ASTRAZENECA-2012SE76832

PATIENT
  Age: 853 Month
  Sex: Female

DRUGS (3)
  1. SYMBICORT [Suspect]
     Active Substance: BUDESONIDE\FORMOTEROL FUMARATE DIHYDRATE
     Dosage: 160/4.5 MCG, TWO PUFFS TWICE DAILY
     Route: 055
  2. ACCOLATE [Suspect]
     Active Substance: ZAFIRLUKAST
     Route: 048
  3. SYMBICORT [Suspect]
     Active Substance: BUDESONIDE\FORMOTEROL FUMARATE DIHYDRATE
     Dosage: 160/4.5 MCG, ONE PUFF TWICE DAILY
     Route: 055

REACTIONS (4)
  - Hypersensitivity [Unknown]
  - Intentional product misuse [Unknown]
  - Head discomfort [Unknown]
  - Drug dose omission [Unknown]

NARRATIVE: CASE EVENT DATE: 201801
